FAERS Safety Report 9705839 (Version 2)
Quarter: 2013Q4

REPORT INFORMATION
  Report Type: Spontaneous
  Country: US (occurrence: US)
  Receive Date: 20131122
  Receipt Date: 20131122
  Transmission Date: 20140711
  Serious: No
  Sender: FDA-Public Use
  Company Number: US-GILEAD-2008-0018113

PATIENT
  Sex: Male
  Weight: 87.09 kg

DRUGS (23)
  1. LETAIRIS [Suspect]
     Indication: PULMONARY ARTERIAL HYPERTENSION
     Route: 048
     Dates: start: 20080811
  2. VIAGRA [Concomitant]
     Route: 048
  3. ATENOLOL [Concomitant]
     Route: 048
  4. ZETIA [Concomitant]
     Route: 048
  5. LIPITOR [Concomitant]
     Route: 048
  6. OXYGEN [Concomitant]
  7. COUMADIN [Concomitant]
     Route: 048
  8. FUROSEMIDE [Concomitant]
     Route: 048
  9. METHOTREXATE [Concomitant]
     Route: 048
  10. RAPAMUNE [Concomitant]
     Route: 048
  11. CELLCEPT [Concomitant]
     Route: 048
  12. PROGRAF [Concomitant]
     Route: 048
  13. FLUOXETINE [Concomitant]
     Route: 048
  14. VALTREX [Concomitant]
     Route: 048
  15. NYSTATIN [Concomitant]
     Route: 048
  16. PREDNISONE [Concomitant]
     Route: 048
  17. AZOPT [Concomitant]
     Route: 048
  18. ZITHROMAX [Concomitant]
     Route: 048
  19. SEPTRA DS [Concomitant]
     Route: 048
  20. TYLENOL [Concomitant]
     Route: 048
  21. CENTRUM [Concomitant]
     Route: 048
  22. CALTRATE [Concomitant]
     Route: 048
  23. FOLIC ACID [Concomitant]
     Route: 048

REACTIONS (2)
  - Lethargy [Not Recovered/Not Resolved]
  - Headache [Not Recovered/Not Resolved]
